FAERS Safety Report 15850359 (Version 3)
Quarter: 2019Q1

REPORT INFORMATION
  Report Type: Spontaneous
  Country: US (occurrence: US)
  Receive Date: 20190121
  Receipt Date: 20190311
  Transmission Date: 20190417
  Serious: No
  Sender: FDA-Public Use
  Company Number: US-PFIZER INC-2019021635

PATIENT
  Age: 66 Year
  Sex: Female

DRUGS (4)
  1. SALMON OIL [Suspect]
     Active Substance: FISH OIL
     Dosage: UNK
  2. DURAGESIC [Suspect]
     Active Substance: FENTANYL
     Dosage: UNK
  3. MORPHINE SULFATE. [Suspect]
     Active Substance: MORPHINE SULFATE
     Dosage: UNK
  4. CYMBALTA [Suspect]
     Active Substance: DULOXETINE HYDROCHLORIDE
     Dosage: UNK

REACTIONS (1)
  - Drug hypersensitivity [Unknown]
